FAERS Safety Report 10084162 (Version 7)
Quarter: 2015Q1

REPORT INFORMATION
  Report Type: Spontaneous
  Country: US (occurrence: US)
  Receive Date: 20140417
  Receipt Date: 20150311
  Transmission Date: 20150720
  Serious: Yes (Hospitalization, Other)
  Sender: FDA-Public Use
  Company Number: US-BAYER-2014-054862

PATIENT
  Age: 30 Year
  Sex: Female

DRUGS (4)
  1. MIRENA [Suspect]
     Active Substance: LEVONORGESTREL
     Indication: CONTRACEPTION
     Dosage: 20 MCG/24HR, CONT
     Route: 015
     Dates: start: 20101104, end: 20130529
  2. LOESTRIN NOS [Concomitant]
     Active Substance: ETHINYL ESTRADIOL\NORETHINDRONE ACETATE
  3. CLOMID [Concomitant]
     Active Substance: CLOMIPHENE CITRATE
     Dosage: UNK
     Dates: start: 201302
  4. MIRENA [Suspect]
     Active Substance: LEVONORGESTREL
     Indication: CONTRACEPTION
     Dosage: 20 MCG/24HR, CONT
     Dates: start: 200803, end: 20090831

REACTIONS (15)
  - Device dislocation [Recovering/Resolving]
  - Menstrual disorder [None]
  - Depression [None]
  - Abortion spontaneous [None]
  - Pregnancy with contraceptive device [None]
  - Pain [Recovering/Resolving]
  - Anxiety [None]
  - Medical device complication [None]
  - Injury [Recovering/Resolving]
  - Stress [None]
  - Drug ineffective [None]
  - Infertility female [None]
  - Procedural pain [None]
  - Uterine perforation [Recovering/Resolving]
  - Fear of disease [None]

NARRATIVE: CASE EVENT DATE: 201011
